FAERS Safety Report 20754364 (Version 1)
Quarter: 2022Q2

REPORT INFORMATION
  Report Type: Spontaneous
  Country: US (occurrence: None)
  Receive Date: 20220426
  Receipt Date: 20220426
  Transmission Date: 20220720
  Serious: No
  Sender: FDA-Public Use
  Company Number: US-ROCHE-2873320

PATIENT
  Sex: Male

DRUGS (1)
  1. ESBRIET [Suspect]
     Active Substance: PIRFENIDONE
     Indication: Idiopathic pulmonary fibrosis
     Dosage: ON 09/JUL/2021, THE DOSE OF PIRFENIDONE WAS WITHDRAWN.
     Route: 048
     Dates: start: 20210520, end: 20210709

REACTIONS (1)
  - Mental disorder [Unknown]
